FAERS Safety Report 5583816-8 (Version None)
Quarter: 2008Q1

REPORT INFORMATION
  Report Type: 
  Country: None (occurrence: None)
  Receive Date: 20080108
  Receipt Date: 20080102
  Transmission Date: 20080703
  Serious: Yes (Other)
  Sender: FDA-Public Use
  Company Number: AT-BAYER-200810127GPV

PATIENT
  Age: 59 Year
  Sex: Female

DRUGS (1)
  1. ULTRAVIST 370 MG J/ML / IOPROMIDE [Suspect]
     Indication: ANGIOGRAM
     Route: 042
     Dates: start: 20071218, end: 20071218

REACTIONS (2)
  - HYPERSENSITIVITY [None]
  - URTICARIA [None]
